FAERS Safety Report 25181703 (Version 1)
Quarter: 2025Q2

REPORT INFORMATION
  Report Type: Report from Study
  Country: KR (occurrence: KR)
  Receive Date: 20250410
  Receipt Date: 20250410
  Transmission Date: 20250717
  Serious: Yes (Death)
  Sender: ROCHE
  Company Number: KR-ROCHE-10000252450

PATIENT

DRUGS (1)
  1. RITUXIMAB [Suspect]
     Active Substance: RITUXIMAB
     Indication: Neuromyelitis optica spectrum disorder
     Dosage: OR 375 MG/M2 ADMINISTERED WEEKLY FOR 4 WEEKS.
     Route: 065

REACTIONS (7)
  - Neutropenia [Unknown]
  - Thrombocytopenia [Unknown]
  - Infusion related reaction [Unknown]
  - Pneumonia [Fatal]
  - COVID-19 [Fatal]
  - Infection [Unknown]
  - Off label use [Unknown]
